FAERS Safety Report 11109870 (Version 3)
Quarter: 2015Q2

REPORT INFORMATION
  Report Type: Spontaneous
  Country: US (occurrence: US)
  Receive Date: 20150513
  Receipt Date: 20150603
  Transmission Date: 20150821
  Serious: Yes (Death)
  Sender: FDA-Public Use
  Company Number: US-PFIZER INC-2015156511

PATIENT
  Age: 50 Year
  Sex: Male

DRUGS (1)
  1. SUTENT [Suspect]
     Active Substance: SUNITINIB MALATE
     Indication: RENAL CELL CARCINOMA STAGE IV
     Dosage: 50 MG, DAILY
     Route: 048
     Dates: start: 20140124, end: 20141230

REACTIONS (7)
  - Wheezing [Not Recovered/Not Resolved]
  - Disease progression [Unknown]
  - Renal cell carcinoma stage IV [Unknown]
  - Proctalgia [Unknown]
  - Hypoaesthesia [Unknown]
  - Death [Fatal]
  - Pain in extremity [Unknown]
